FAERS Safety Report 14489618 (Version 1)
Quarter: 2018Q1

REPORT INFORMATION
  Report Type: Spontaneous
  Country: US (occurrence: US)
  Receive Date: 20180205
  Receipt Date: 20180205
  Transmission Date: 20180509
  Serious: No
  Sender: FDA-Public Use
  Company Number: US-AMGEN-USASP2017042971

PATIENT
  Sex: Female

DRUGS (2)
  1. ABRAXANE [Concomitant]
     Active Substance: PACLITAXEL
     Indication: BREAST CANCER STAGE III
  2. NEULASTA [Suspect]
     Active Substance: PEGFILGRASTIM
     Indication: NEUTROPENIA
     Dosage: 6 MG, UNK
     Route: 065

REACTIONS (2)
  - Wrong technique in product usage process [Unknown]
  - Hypersensitivity [Unknown]

NARRATIVE: CASE EVENT DATE: 20170316
